FAERS Safety Report 4429332-8 (Version None)
Quarter: 2004Q3

REPORT INFORMATION
  Report Type: 
  Country: None (occurrence: None)
  Receive Date: 20040816
  Receipt Date: 20040803
  Transmission Date: 20050211
  Serious: Yes (Other)
  Sender: FDA-Public Use
  Company Number: USA-2003-0009608

PATIENT
  Age: 55 Year
  Sex: Male

DRUGS (4)
  1. OXYCONTIN [Suspect]
     Indication: PAIN
  2. ELAVIL [Concomitant]
  3. ALPRAZOLAM [Concomitant]
  4. IBUPROFEN [Concomitant]

REACTIONS (12)
  - ARTHRALGIA [None]
  - DEPRESSION [None]
  - DISTURBANCE IN ATTENTION [None]
  - DRUG DEPENDENCE [None]
  - DRUG EFFECT DECREASED [None]
  - DRUG WITHDRAWAL SYNDROME [None]
  - FEELING ABNORMAL [None]
  - INADEQUATE ANALGESIA [None]
  - PAIN EXACERBATED [None]
  - PAIN IN EXTREMITY [None]
  - PERIARTHRITIS [None]
  - TESTICULAR PAIN [None]
